FAERS Safety Report 4417796-5 (Version None)
Quarter: 2004Q2

REPORT INFORMATION
  Report Type: 
  Country: None (occurrence: None)
  Receive Date: 20040623
  Receipt Date: 20031006
  Transmission Date: 20050107
  Serious: Yes (Hospitalization)
  Sender: FDA-Public Use
  Company Number: 2003_000082

PATIENT
  Sex: Male

DRUGS (1)
  1. DEPOCYT [Suspect]
     Dosage: 50 MG, INTRATHECAL
     Route: 037
     Dates: start: 20031003, end: 20031003

REACTIONS (5)
  - CONFUSIONAL STATE [None]
  - ENCEPHALOPATHY [None]
  - GRAND MAL CONVULSION [None]
  - MENINGITIS ASEPTIC [None]
  - SOMNOLENCE [None]
